FAERS Safety Report 17483530 (Version 1)
Quarter: 2020Q1

REPORT INFORMATION
  Report Type: Report from Study
  Country: US (occurrence: US)
  Receive Date: 20200302
  Receipt Date: 20200302
  Transmission Date: 20200409
  Serious: Yes (Death)
  Sender: FDA-Public Use
  Company Number: US-PFIZER INC-2020090172

PATIENT
  Age: 23 Year
  Sex: Male

DRUGS (1)
  1. PENTOSTATIN. [Suspect]
     Active Substance: PENTOSTATIN
     Indication: LYMPHOMA
     Dosage: 30 MG/M2, UNK
     Route: 040

REACTIONS (1)
  - Shock [Fatal]
